FAERS Safety Report 9393537 (Version 1)
Quarter: 2013Q3

REPORT INFORMATION
  Report Type: Spontaneous
  Country: BR (occurrence: BR)
  Receive Date: 20130710
  Receipt Date: 20130710
  Transmission Date: 20140515
  Serious: Yes (Other)
  Sender: FDA-Public Use
  Company Number: BR-ASTRAZENECA-2013SE50314

PATIENT
  Age: 839 Month
  Sex: Female
  Weight: 72 kg

DRUGS (2)
  1. CRESTOR [Suspect]
     Indication: BLOOD CHOLESTEROL INCREASED
     Route: 048
     Dates: start: 2011
  2. UNKNOWN [Suspect]
     Indication: CARDIAC DISORDER
     Route: 065
     Dates: start: 201212

REACTIONS (3)
  - Coronary artery disease [Not Recovered/Not Resolved]
  - Cough [Recovering/Resolving]
  - Cardiac disorder [Unknown]
